FAERS Safety Report 4280279-X (Version None)
Quarter: 2004Q1

REPORT INFORMATION
  Report Type: 
  Country: None (occurrence: None)
  Receive Date: 20040126
  Receipt Date: 20040113
  Transmission Date: 20041129
  Serious: Yes (Other)
  Sender: FDA-Public Use
  Company Number: 2004002690

PATIENT
  Age: 63 Year
  Sex: Male

DRUGS (6)
  1. TIKOSYN [Suspect]
     Indication: CARDIAC FIBRILLATION
     Dosage: 1000 MCG (BID), ORAL
     Route: 048
     Dates: start: 20030301
  2. PREDNISONE [Suspect]
     Indication: PERICARDIAL EFFUSION
     Dates: start: 20030101
  3. WARFARIN SODIUM [Concomitant]
  4. FOLIC ACID [Concomitant]
  5. TEMAZEPAM (TEMAZPEMA) [Concomitant]
  6. CENTRUM (VITAMINS NOS, MINERALS NOS) [Concomitant]

REACTIONS (11)
  - ARRHYTHMIA [None]
  - CARDIAC DISORDER [None]
  - CARDIAC FIBRILLATION [None]
  - DISEASE RECURRENCE [None]
  - EXTRASYSTOLES [None]
  - FATIGUE [None]
  - HEART RATE IRREGULAR [None]
  - INCREASED APPETITE [None]
  - NASOPHARYNGITIS [None]
  - TACHYCARDIA [None]
  - WEIGHT INCREASED [None]
